FAERS Safety Report 7278312-6 (Version None)
Quarter: 2010Q4

REPORT INFORMATION
  Report Type: 
  Country: None (occurrence: None)
  Receive Date: 20101206
  Receipt Date: 20101006
  Transmission Date: 20110411
  Serious: No
  Sender: FDA-Public Use
  Company Number: 2010SP053596

PATIENT
  Age: 40 Year
  Sex: Female

DRUGS (8)
  1. SAPHRIS [Suspect]
     Indication: BIPOLAR DISORDER
     Dosage: 5 MG;ONCE;PO
     Route: 048
     Dates: start: 20100903, end: 20100903
  2. NEURONTIL (NEURONTIN) [Concomitant]
  3. ULTRACET [Concomitant]
  4. SOMA [Concomitant]
  5. PERCOCET [Concomitant]
  6. PREVACID [Concomitant]
  7. KLONOPIN [Concomitant]
  8. AMBIEN [Concomitant]

REACTIONS (5)
  - ABASIA [None]
  - DYSARTHRIA [None]
  - FEELING ABNORMAL [None]
  - INCORRECT ROUTE OF DRUG ADMINISTRATION [None]
  - SPEECH DISORDER [None]
